FAERS Safety Report 24177136 (Version 1)
Quarter: 2024Q3

REPORT INFORMATION
  Report Type: Spontaneous
  Country: US (occurrence: US)
  Receive Date: 20240806
  Receipt Date: 20240806
  Transmission Date: 20241017
  Serious: Yes (Other)
  Sender: AMNEAL
  Company Number: US-AMNEAL-2024-AMRX-00425

PATIENT
  Age: 18 Year
  Sex: Female
  Weight: 54.422 kg

DRUGS (2)
  1. BACLOFEN [Suspect]
     Active Substance: BACLOFEN
     Indication: Product used for unknown indication
     Dosage: 500 MCG/DAY
     Route: 037
  2. BACLOFEN [Suspect]
     Active Substance: BACLOFEN
     Dosage: 400 MCG/DAY
     Route: 037

REACTIONS (6)
  - Urinary retention [Recovered/Resolved]
  - Drug withdrawal syndrome [Recovered/Resolved]
  - Muscle spasticity [Recovered/Resolved]
  - Pruritus [Unknown]
  - Agitation [Unknown]
  - Hypertonia [Unknown]

NARRATIVE: CASE EVENT DATE: 20240203
